FAERS Safety Report 21767561 (Version 2)
Quarter: 2025Q3

REPORT INFORMATION
  Report Type: Spontaneous
  Country: EU (occurrence: EU)
  Receive Date: 20221222
  Receipt Date: 20250707
  Transmission Date: 20251021
  Serious: Yes (Other)
  Sender: AMGEN
  Company Number: EU-AMGEN-GRCSP2022216907

PATIENT

DRUGS (1)
  1. PROLIA [Suspect]
     Active Substance: DENOSUMAB
     Indication: Osteoporosis
     Route: 065

REACTIONS (6)
  - Spinal fracture [Unknown]
  - Rebound effect [Unknown]
  - Unevaluable event [Unknown]
  - Intentional product misuse [Unknown]
  - Bone density decreased [Unknown]
  - Dental care [Unknown]
